FAERS Safety Report 9537831 (Version 2)
Quarter: 2013Q4

REPORT INFORMATION
  Report Type: Report from Study
  Country: BR (occurrence: BR)
  Receive Date: 20130919
  Receipt Date: 20131130
  Transmission Date: 20140711
  Serious: Yes (Hospitalization, Other)
  Sender: FDA-Public Use
  Company Number: PHHY2013BR104314

PATIENT
  Age: 69 Year
  Sex: Female

DRUGS (3)
  1. DIOVAN HCT [Suspect]
     Indication: HYPERTENSION
     Dosage: 1 DF(160MG VALS, 12.5MG HCTZ), DAILY
     Route: 048
  2. DIOVAN [Suspect]
     Indication: HYPERTENSION
     Dosage: 1 DF,(80MG), QD
     Route: 048
  3. DIOVAN [Suspect]
     Dosage: 1 DF,(320MG) QD
     Route: 048
     Dates: start: 201207

REACTIONS (10)
  - Arrhythmia [Recovering/Resolving]
  - Heart rate increased [Unknown]
  - Heart rate abnormal [Recovering/Resolving]
  - Blood pressure increased [Recovered/Resolved]
  - Venous insufficiency [Recovering/Resolving]
  - Local swelling [Recovering/Resolving]
  - Cardiac failure [Recovered/Resolved]
  - Hypotension [Recovered/Resolved]
  - Muscular weakness [Recovered/Resolved]
  - Dizziness [Recovered/Resolved]
